FAERS Safety Report 6311526-8 (Version None)
Quarter: 2009Q3

REPORT INFORMATION
  Report Type: 
  Country: None (occurrence: None)
  Receive Date: 20090817
  Receipt Date: 20090807
  Transmission Date: 20100115
  Serious: Yes (Other)
  Sender: FDA-Public Use
  Company Number: DE-NOVOPROD-287218

PATIENT
  Sex: Female
  Weight: 51.9 kg

DRUGS (1)
  1. NORDITROPIN NORDIFLEX [Suspect]
     Indication: DWARFISM
     Dosage: 1.6 MG, QD
     Route: 058
     Dates: start: 20090302

REACTIONS (1)
  - SCOLIOSIS [None]
